FAERS Safety Report 24864556 (Version 2)
Quarter: 2025Q1

REPORT INFORMATION
  Report Type: Report from Study
  Country: US (occurrence: US)
  Receive Date: 20250120
  Receipt Date: 20250206
  Transmission Date: 20250409
  Serious: Yes (Other)
  Sender: ABBVIE
  Company Number: US-ABBVIE-6094515

PATIENT
  Age: 64 Year
  Sex: Female
  Weight: 119 kg

DRUGS (4)
  1. RINVOQ [Suspect]
     Active Substance: UPADACITINIB
     Indication: Rheumatoid arthritis
     Dosage: FORM STRENGTH: 15 MG
     Route: 048
     Dates: start: 202403, end: 202407
  2. RINVOQ [Suspect]
     Active Substance: UPADACITINIB
     Indication: Rheumatoid arthritis
     Dosage: FORM STRENGTH: 15 MG
     Route: 048
     Dates: start: 202407
  3. RINVOQ [Suspect]
     Active Substance: UPADACITINIB
     Indication: Rheumatoid arthritis
     Dosage: FORM STRENGTH: 15 MG
     Route: 048
     Dates: start: 2022, end: 202403
  4. OFEV [Concomitant]
     Active Substance: NINTEDANIB
     Indication: Rheumatoid arthritis

REACTIONS (3)
  - Chondropathy [Recovering/Resolving]
  - Ligament rupture [Unknown]
  - Pain [Unknown]

NARRATIVE: CASE EVENT DATE: 20230101
